FAERS Safety Report 9744830 (Version 1)
Quarter: 2013Q4

REPORT INFORMATION
  Report Type: Spontaneous
  Country: US (occurrence: US)
  Receive Date: 20131211
  Receipt Date: 20131211
  Transmission Date: 20140711
  Serious: Yes (Hospitalization)
  Sender: FDA-Public Use
  Company Number: US-AMGEN-USASP2013086600

PATIENT
  Age: 80 Year
  Sex: Female

DRUGS (3)
  1. PROCRIT [Suspect]
     Indication: ANAEMIA
     Dosage: 10000 UNIT, WEEKLY OR BIWEEKLY
     Route: 065
  2. WARFARIN [Concomitant]
     Indication: THROMBOSIS
     Dosage: 5 MG, QD
     Route: 048
  3. PREDNISONE [Concomitant]
     Indication: POLYMYALGIA RHEUMATICA
     Dosage: 10 A DAY

REACTIONS (2)
  - Urinary tract infection [Unknown]
  - Pyrexia [Unknown]
